FAERS Safety Report 8313622-2 (Version None)
Quarter: 2012Q2

REPORT INFORMATION
  Report Type: 
  Country: None (occurrence: None)
  Receive Date: 20120426
  Receipt Date: 20120417
  Transmission Date: 20120825
  Serious: Yes (Hospitalization, Other)
  Sender: FDA-Public Use
  Company Number: GB-TEVA-331011ISR

PATIENT
  Sex: Male

DRUGS (2)
  1. COPAXONE [Suspect]
     Indication: MULTIPLE SCLEROSIS
     Dosage: 20 MILLIGRAM;
     Route: 058
     Dates: start: 20091201
  2. PREGABALIN [Concomitant]
     Indication: PAIN

REACTIONS (4)
  - INJECTION SITE PAIN [None]
  - NAUSEA [None]
  - HAEMORRHAGE [None]
  - MALAISE [None]
